FAERS Safety Report 19478543 (Version 7)
Quarter: 2024Q2

REPORT INFORMATION
  Report Type: Spontaneous
  Country: US (occurrence: US)
  Receive Date: 20210630
  Receipt Date: 20240523
  Transmission Date: 20240716
  Serious: Yes (Hospitalization, Other)
  Sender: FDA-Public Use
  Company Number: US-JNJFOC-20210661461

PATIENT
  Age: 22 Year
  Sex: Male
  Weight: 108.96 kg

DRUGS (18)
  1. INVEGA SUSTENNA [Suspect]
     Active Substance: PALIPERIDONE PALMITATE
     Indication: Schizophrenia
     Dosage: DELTOID INJECTION
     Route: 030
     Dates: start: 20181128
  2. INVEGA SUSTENNA [Suspect]
     Active Substance: PALIPERIDONE PALMITATE
     Route: 030
     Dates: start: 20190103, end: 20200127
  3. INVEGA SUSTENNA [Suspect]
     Active Substance: PALIPERIDONE PALMITATE
  4. RISPERDAL CONSTA [Suspect]
     Active Substance: RISPERIDONE
     Indication: Schizophrenia
     Route: 030
  5. RISPERDAL CONSTA [Suspect]
     Active Substance: RISPERIDONE
  6. RISPERDAL CONSTA [Suspect]
     Active Substance: RISPERIDONE
  7. RISPERDAL CONSTA [Suspect]
     Active Substance: RISPERIDONE
  8. INVEGA [Suspect]
     Active Substance: PALIPERIDONE
     Indication: Schizophrenia
     Route: 048
     Dates: start: 20181128
  9. RISPERDAL [Suspect]
     Active Substance: RISPERIDONE
     Indication: Schizophrenia
     Route: 048
     Dates: start: 20181128
  10. INVEGA HAFYERA [Suspect]
     Active Substance: PALIPERIDONE PALMITATE
     Indication: Product used for unknown indication
     Route: 030
  11. INVEGA HAFYERA [Suspect]
     Active Substance: PALIPERIDONE PALMITATE
  12. ABILIFY [Concomitant]
     Active Substance: ARIPIPRAZOLE
  13. ATARAX [Concomitant]
     Active Substance: HYDROXYZINE HYDROCHLORIDE
     Indication: Pruritus
     Dosage: AS NEEDED
     Route: 048
  14. ATARAX [Concomitant]
     Active Substance: HYDROXYZINE HYDROCHLORIDE
     Indication: Anxiety
  15. DESYREL [Concomitant]
     Active Substance: TRAZODONE HYDROCHLORIDE
     Indication: Sleep disorder
     Dosage: AS NEEDED
     Route: 048
  16. HYDROXYZINE HYDROCHLORIDE [Concomitant]
     Active Substance: HYDROXYZINE HYDROCHLORIDE
     Dosage: AS NEEDED
     Route: 048
     Dates: start: 20181220, end: 20190531
  17. LISINOPRIL [Concomitant]
     Active Substance: LISINOPRIL
     Route: 048
     Dates: start: 20181220, end: 20190531
  18. TRAZODONE [Concomitant]
     Active Substance: TRAZODONE HYDROCHLORIDE
     Route: 048
     Dates: start: 20181220, end: 20190531

REACTIONS (12)
  - Syncope [Unknown]
  - Cholelithiasis [Recovered/Resolved]
  - Suicidal ideation [Unknown]
  - Cholecystitis [Recovered/Resolved]
  - Tardive dyskinesia [Not Recovered/Not Resolved]
  - Weight increased [Unknown]
  - Adverse drug reaction [Unknown]
  - Sciatica [Unknown]
  - Product administration error [Unknown]
  - Tachycardia [Not Recovered/Not Resolved]
  - Incision site swelling [Unknown]
  - Muscle twitching [Unknown]

NARRATIVE: CASE EVENT DATE: 20181128
